FAERS Safety Report 15348213 (Version 1)
Quarter: 2018Q3

REPORT INFORMATION
  Report Type: Spontaneous
  Country: US (occurrence: US)
  Receive Date: 20180829
  Receipt Date: 20180829
  Transmission Date: 20181010
  Serious: Yes (Life-Threatening, Hospitalization, Disabling)
  Sender: FDA-Public Use
  Company Number: None

PATIENT
  Age: 43 Year
  Sex: Female
  Weight: 88.2 kg

DRUGS (4)
  1. WARFIRAN [Concomitant]
  2. AVERSTON [Concomitant]
  3. LISINOPRIL. [Concomitant]
     Active Substance: LISINOPRIL
  4. MINIVELLE [Suspect]
     Active Substance: ESTRADIOL
     Indication: HORMONE REPLACEMENT THERAPY
     Dosage: ?          QUANTITY:1 PATCH(ES);?
     Route: 062
     Dates: start: 20180611, end: 20180713

REACTIONS (3)
  - Renal impairment [None]
  - Diarrhoea [None]
  - Thrombosis [None]

NARRATIVE: CASE EVENT DATE: 20180730
